FAERS Safety Report 11835787 (Version 1)
Quarter: 2015Q4

REPORT INFORMATION
  Report Type: Spontaneous
  Country: SE (occurrence: SE)
  Receive Date: 20151215
  Receipt Date: 20151215
  Transmission Date: 20160305
  Serious: Yes (Hospitalization)
  Sender: FDA-Public Use
  Company Number: SE-ACTAVIS-2015-27487

PATIENT
  Age: 57 Year
  Sex: Male

DRUGS (2)
  1. ENALAPRIL ACTAVIS [Suspect]
     Active Substance: ENALAPRIL
     Indication: TRANSIENT ISCHAEMIC ATTACK
     Dosage: 1 DF, DAILY
     Route: 065
     Dates: start: 20110418, end: 20110420
  2. ENALAPRIL ACTAVIS [Suspect]
     Active Substance: ENALAPRIL
     Indication: HYPERTENSION

REACTIONS (4)
  - Impaired work ability [Unknown]
  - Brain stem infarction [Not Recovered/Not Resolved]
  - Infarction [Not Recovered/Not Resolved]
  - Thrombosis [Not Recovered/Not Resolved]

NARRATIVE: CASE EVENT DATE: 20110420
